FAERS Safety Report 13746443 (Version 3)
Quarter: 2017Q3

REPORT INFORMATION
  Report Type: Report from Study
  Country: US (occurrence: US)
  Receive Date: 20170712
  Receipt Date: 20170929
  Transmission Date: 20171127
  Serious: Yes (Death, Other)
  Sender: FDA-Public Use
  Company Number: US-BIOGEN-2017BI00430484

PATIENT
  Sex: Female

DRUGS (1)
  1. TYSABRI [Suspect]
     Active Substance: NATALIZUMAB
     Indication: MULTIPLE SCLEROSIS
     Route: 042
     Dates: start: 20110117, end: 20170404

REACTIONS (4)
  - Neoplasm malignant [Unknown]
  - Opportunistic infection [Unknown]
  - Progressive multifocal leukoencephalopathy [Unknown]
  - Death [Fatal]
